FAERS Safety Report 23395125 (Version 4)
Quarter: 2024Q3

REPORT INFORMATION
  Report Type: Spontaneous
  Country: CA (occurrence: CA)
  Receive Date: 20240112
  Receipt Date: 20240819
  Transmission Date: 20241017
  Serious: Yes (Death)
  Sender: AUROBINDO
  Company Number: CA-AUROBINDO-AUR-APL-2024-001070

PATIENT
  Age: 25 Year
  Sex: Female

DRUGS (14)
  1. LAMOTRIGINE [Suspect]
     Active Substance: LAMOTRIGINE
     Indication: Seizure
     Dosage: UNK
     Route: 065
  2. LEVETIRACETAM [Suspect]
     Active Substance: LEVETIRACETAM
     Indication: Seizure
     Dosage: UNK
     Route: 065
  3. LACOSAMIDE [Suspect]
     Active Substance: LACOSAMIDE
     Indication: Seizure
     Dosage: UNK
     Route: 065
  4. TOPIRAMATE [Suspect]
     Active Substance: TOPIRAMATE
     Indication: Seizure
     Dosage: UNK
     Route: 065
  5. CARBAMAZEPINE [Suspect]
     Active Substance: CARBAMAZEPINE
     Indication: Seizure
     Dosage: UNK
     Route: 065
  6. CLOBAZAM [Suspect]
     Active Substance: CLOBAZAM
     Indication: Seizure
     Dosage: UNK
     Route: 065
  7. PERAMPANEL [Suspect]
     Active Substance: PERAMPANEL
     Indication: Seizure
     Dosage: UNK
     Route: 065
  8. VALPROIC ACID [Suspect]
     Active Substance: VALPROIC ACID
     Indication: Seizure
     Dosage: UNK
     Route: 065
  9. FENFLURAMINE [Suspect]
     Active Substance: FENFLURAMINE
     Indication: Seizure
     Dosage: UNK
     Route: 065
  10. RUFINAMIDE [Suspect]
     Active Substance: RUFINAMIDE
     Indication: Seizure
     Dosage: UNK
     Route: 065
  11. ZONISAMIDE [Suspect]
     Active Substance: ZONISAMIDE
     Indication: Seizure
     Dosage: UNK
     Route: 065
  12. PIRACETAM [Suspect]
     Active Substance: PIRACETAM
     Indication: Seizure
     Dosage: UNK
     Route: 065
  13. LACOSAMIDE [Suspect]
     Active Substance: LACOSAMIDE
     Indication: Seizure
     Dosage: UNK
     Route: 065
  14. FYCOMPA [Suspect]
     Active Substance: PERAMPANEL
     Indication: Seizure
     Dosage: UNK
     Route: 048

REACTIONS (3)
  - Multiple-drug resistance [Fatal]
  - General physical health deterioration [Fatal]
  - Drug ineffective [Unknown]
